FAERS Safety Report 6709425-2 (Version None)
Quarter: 2010Q2

REPORT INFORMATION
  Report Type: 
  Country: None (occurrence: None)
  Receive Date: 20100503
  Receipt Date: 20100503
  Transmission Date: 20101027
  Serious: Yes (Hospitalization)
  Sender: FDA-Public Use
  Company Number: None

PATIENT
  Sex: Male
  Weight: 68.2 kg

DRUGS (12)
  1. SORAFENIB 400MG DAILY PFIZER [Suspect]
     Indication: PANCREATIC CARCINOMA
     Dosage: SORAFENIB 400MG EVERY DAY PO
     Route: 048
     Dates: start: 20100331, end: 20100424
  2. ERLOTINIB HYDROCHLORIDE [Suspect]
     Indication: PANCREATIC CARCINOMA
     Dosage: ERLOTINIB 150MG EVERY DAY PO
     Route: 048
     Dates: start: 20100331, end: 20100424
  3. XANAX [Concomitant]
  4. CREON [Concomitant]
  5. FRAGMIN [Concomitant]
  6. DEPAKOTE [Concomitant]
  7. LEXAPRO [Concomitant]
  8. PRILOSEC OTC [Concomitant]
  9. FENTANYL [Concomitant]
  10. PERCOCET [Concomitant]
  11. SENOKOT [Concomitant]
  12. MIRALAX [Concomitant]

REACTIONS (7)
  - ABDOMINAL PAIN [None]
  - BACK PAIN [None]
  - DECREASED APPETITE [None]
  - DEEP VEIN THROMBOSIS [None]
  - DYSPNOEA [None]
  - HYPOPHAGIA [None]
  - VOMITING [None]
